FAERS Safety Report 13701315 (Version 1)
Quarter: 2017Q2

REPORT INFORMATION
  Report Type: Spontaneous
  Country: US (occurrence: US)
  Receive Date: 20170629
  Receipt Date: 20170629
  Transmission Date: 20170830
  Serious: No
  Sender: FDA-Public Use
  Company Number: US-ALLERGAN-1720867US

PATIENT
  Sex: Female
  Weight: 71.2 kg

DRUGS (6)
  1. ALOSETRON HYDROCHLORIDE. [Suspect]
     Active Substance: ALOSETRON HYDROCHLORIDE
     Indication: IRRITABLE BOWEL SYNDROME
     Dosage: 1.5 MG, QD
     Route: 048
  2. BYSTOLIC [Concomitant]
     Active Substance: NEBIVOLOL HYDROCHLORIDE
     Indication: PRODUCT USED FOR UNKNOWN INDICATION
     Route: 065
  3. VIBERZI [Suspect]
     Active Substance: ELUXADOLINE
     Indication: IRRITABLE BOWEL SYNDROME
     Dosage: UNK MG, UNK
     Route: 065
     Dates: start: 201703, end: 201703
  4. VIBERZI [Suspect]
     Active Substance: ELUXADOLINE
     Dosage: 100 MG, UNK
     Route: 048
  5. ALOSETRON HYDROCHLORIDE. [Suspect]
     Active Substance: ALOSETRON HYDROCHLORIDE
     Dosage: 1 DF, BID
     Route: 048
  6. VIBERZI [Suspect]
     Active Substance: ELUXADOLINE
     Dosage: 75 MG, UNK
     Route: 048

REACTIONS (1)
  - Drug ineffective [Unknown]
